FAERS Safety Report 22825143 (Version 7)
Quarter: 2023Q4

REPORT INFORMATION
  Report Type: Spontaneous
  Country: CA (occurrence: CA)
  Receive Date: 20230816
  Receipt Date: 20231012
  Transmission Date: 20240109
  Serious: Yes (Other)
  Sender: FDA-Public Use
  Company Number: CA-CELLTRION INC.-2023CA016153

PATIENT

DRUGS (8)
  1. INFLECTRA [Suspect]
     Active Substance: INFLIXIMAB-DYYB
     Indication: Colitis ulcerative
     Dosage: 700 MG, W 0, 2, 6 WEEKS THEN EVERY 8 WEEKS
     Route: 042
     Dates: start: 20230629
  2. INFLECTRA [Suspect]
     Active Substance: INFLIXIMAB-DYYB
     Dosage: 700 MG, W 0, 2, 6 WEEKS THEN EVERY 8 WEEKS
     Route: 042
     Dates: start: 20230712
  3. INFLECTRA [Suspect]
     Active Substance: INFLIXIMAB-DYYB
     Dosage: 700 MG, 4 WEEKS (W6) (SUPPOSE TO TAKE W 0, 2, 6 WEEKS THEN EVERY 8 WEEKS)
     Route: 042
     Dates: start: 20230809
  4. INFLECTRA [Suspect]
     Active Substance: INFLIXIMAB-DYYB
     Dosage: 800 MG, EVERY 4 WEEKS REINDUCTION WEEK 0 ,2, THEN MAINTENANCE EVERY 4 WEEKS (WEEK 0 OF REINDUCTION)
     Route: 042
     Dates: start: 20230825
  5. INFLECTRA [Suspect]
     Active Substance: INFLIXIMAB-DYYB
     Dosage: 800 MG,  EVERY 4 WEEKS  REINDUCTION WEEK 0 ,2, THEN MAINTENANCE EVERY 4 WEEKS  (WEEK 2 REINDUCTION )
     Route: 042
     Dates: start: 20230907
  6. PREDNISONE [Concomitant]
     Active Substance: PREDNISONE
     Dosage: 1 DF
     Dates: start: 2023
  7. CHOLECALCIFEROL [Concomitant]
     Active Substance: CHOLECALCIFEROL
     Dosage: UNK
  8. CALCIUM [Concomitant]
     Active Substance: CALCIUM
     Dosage: UNK

REACTIONS (6)
  - Condition aggravated [Recovering/Resolving]
  - Rectal haemorrhage [Not Recovered/Not Resolved]
  - Drug level decreased [Unknown]
  - Off label use [Unknown]
  - Off label use [Unknown]
  - Intentional product use issue [Unknown]

NARRATIVE: CASE EVENT DATE: 20230101
